FAERS Safety Report 23617414 (Version 1)
Quarter: 2024Q1

REPORT INFORMATION
  Report Type: Spontaneous
  Country: US (occurrence: None)
  Receive Date: 20240310
  Receipt Date: 20240310
  Transmission Date: 20240409
  Serious: Yes (Other)
  Sender: FDA-Public Use
  Company Number: None

PATIENT
  Age: 54 Year
  Sex: Female
  Weight: 67.5 kg

DRUGS (3)
  1. ORAJEL [Suspect]
     Active Substance: ALLANTOIN\BENZOCAINE\CAMPHOR (NATURAL)\DIMETHICONE\MENTHOL
     Indication: Toothache
     Dosage: OTHER QUANTITY : 1 DROP(S);?FREQUENCY : AS NEEDED;?
     Route: 061
     Dates: start: 20240309, end: 20240310
  2. IBUPROFEN [Concomitant]
     Active Substance: IBUPROFEN
  3. tumeric [Concomitant]

REACTIONS (3)
  - Swelling face [None]
  - Eye swelling [None]
  - Product use complaint [None]

NARRATIVE: CASE EVENT DATE: 20240309
